FAERS Safety Report 9729140 (Version 2)
Quarter: 2013Q4

REPORT INFORMATION
  Report Type: Report from Study
  Country: US (occurrence: US)
  Receive Date: 20131204
  Receipt Date: 20131226
  Transmission Date: 20140711
  Serious: Yes (Death)
  Sender: FDA-Public Use
  Company Number: US-NAPPMUNDI-USA-2013-0109119

PATIENT
  Age: 68 Year
  Sex: Male

DRUGS (2)
  1. OXY CR TAB [Suspect]
     Indication: PRODUCT USED FOR UNKNOWN INDICATION
     Dosage: 160 MG, BID
     Route: 048
     Dates: start: 20131108, end: 20131124
  2. OXY CR TAB [Suspect]
     Dosage: 40 MG, DAILY
     Route: 048
     Dates: start: 20131108, end: 20131124

REACTIONS (1)
  - Cerebrovascular accident [Fatal]
